FAERS Safety Report 12475103 (Version 2)
Quarter: 2016Q3

REPORT INFORMATION
  Report Type: Spontaneous
  Country: FR (occurrence: FR)
  Receive Date: 20160617
  Receipt Date: 20160718
  Transmission Date: 20161109
  Serious: Yes (Hospitalization)
  Sender: FDA-Public Use
  Company Number: FR-ROCHE-1776445

PATIENT
  Age: 84 Year
  Sex: Male

DRUGS (12)
  1. ATENOLOL. [Concomitant]
     Active Substance: ATENOLOL
  2. EUPANTOL [Concomitant]
     Active Substance: PANTOPRAZOLE SODIUM
  3. XARELTO [Concomitant]
     Active Substance: RIVAROXABAN
  4. TOPALGIC (FRANCE) [Concomitant]
     Active Substance: TRAMADOL
  5. COVERSYL [Concomitant]
     Active Substance: PERINDOPRIL
  6. ACTILYSE [Suspect]
     Active Substance: ALTEPLASE
     Indication: ISCHAEMIC STROKE
     Dosage: 8MG DURING 1 HOUR AND THEN 73MG
     Route: 042
     Dates: start: 20160513, end: 20160513
  7. SERETIDE [Concomitant]
     Active Substance: FLUTICASONE PROPIONATE\SALMETEROL XINAFOATE
  8. ASPEGIC [Concomitant]
     Active Substance: ASPIRIN DL-LYSINE
  9. DOXAZOSINE [Concomitant]
     Active Substance: DOXAZOSIN MESYLATE
  10. MIANSERINE [Concomitant]
     Active Substance: MIANSERIN HYDROCHLORIDE
  11. TIOTROPIUM [Concomitant]
     Active Substance: TIOTROPIUM
  12. IVABRADINE [Concomitant]
     Active Substance: IVABRADINE

REACTIONS (2)
  - Haemorrhagic transformation stroke [Recovered/Resolved]
  - Haematuria [Recovered/Resolved]

NARRATIVE: CASE EVENT DATE: 20160514
